FAERS Safety Report 14560948 (Version 1)
Quarter: 2018Q1

REPORT INFORMATION
  Report Type: Spontaneous
  Country: CA (occurrence: CA)
  Receive Date: 20180222
  Receipt Date: 20180222
  Transmission Date: 20180509
  Serious: Yes (Hospitalization, Other)
  Sender: FDA-Public Use
  Company Number: CA-009507513-1802CAN009165

PATIENT
  Age: 53 Year
  Sex: Female

DRUGS (2)
  1. CYRAMZA [Concomitant]
     Active Substance: RAMUCIRUMAB
     Dosage: SINGLE USE VIALS
  2. KEYTRUDA [Suspect]
     Active Substance: PEMBROLIZUMAB
     Indication: METASTATIC NEOPLASM
     Dosage: 140,0 MG, 1 EVERY 3 WEEKS
     Route: 042

REACTIONS (4)
  - Jaundice [Recovered/Resolved]
  - Pancreatic cyst [Recovered/Resolved]
  - Hepatic failure [Recovered/Resolved]
  - Abdominal pain [Recovered/Resolved]
